FAERS Safety Report 9493493 (Version 2)
Quarter: 2013Q3

REPORT INFORMATION
  Report Type: Spontaneous
  Country: RO (occurrence: RO)
  Receive Date: 20130902
  Receipt Date: 20130918
  Transmission Date: 20140515
  Serious: Yes (Other)
  Sender: FDA-Public Use
  Company Number: RO-PFIZER INC-2013248585

PATIENT
  Age: 63 Year
  Sex: Male

DRUGS (2)
  1. CISPLATIN [Suspect]
     Indication: NASOPHARYNGEAL CANCER
     Dosage: 70 MG/M2, CYCLIC (4 CYCLES IN ALL)
  2. DOCETAXEL [Concomitant]
     Indication: NASOPHARYNGEAL CANCER
     Dosage: 80 MG/M2, CYCLIC (4 CYCLES IN ALL)

REACTIONS (1)
  - Hepatitis cholestatic [Recovered/Resolved]
